FAERS Safety Report 20125968 (Version 1)
Quarter: 2021Q4

REPORT INFORMATION
  Report Type: Spontaneous
  Country: US (occurrence: US)
  Receive Date: 20211129
  Receipt Date: 20211129
  Transmission Date: 20220303
  Serious: No
  Sender: FDA-Public Use
  Company Number: US-ANTARES PHARMA, INC.-2020-SPO-MX-0752

PATIENT

DRUGS (2)
  1. OTREXUP [Suspect]
     Active Substance: METHOTREXATE
     Indication: Rheumatoid arthritis
     Dosage: 15 MG/0.4ML, QWK
     Route: 058
  2. OTREXUP [Suspect]
     Active Substance: METHOTREXATE
     Dosage: 12.5 MG/0.4ML, QWK
     Route: 058

REACTIONS (1)
  - Product dose omission issue [Unknown]
